FAERS Safety Report 8562604-4 (Version None)
Quarter: 2012Q3

REPORT INFORMATION
  Report Type: 
  Country: None (occurrence: None)
  Receive Date: 20120802
  Receipt Date: 20120711
  Transmission Date: 20120928
  Serious: No
  Sender: FDA-Public Use
  Company Number: US-AMGEN-USASP2012043215

PATIENT
  Age: 49 Year
  Sex: Female

DRUGS (1)
  1. ENBREL [Suspect]
     Indication: PSORIATIC ARTHROPATHY
     Dosage: 50 MG, QWK
     Dates: start: 20060101, end: 20120513

REACTIONS (10)
  - BRONCHITIS [None]
  - WEIGHT DECREASED [None]
  - BACTERIAL INFECTION [None]
  - DRY SKIN [None]
  - VIRAL INFECTION [None]
  - PSORIATIC ARTHROPATHY [None]
  - HYPERSENSITIVITY [None]
  - COSTOCHONDRITIS [None]
  - LIP DRY [None]
  - PYREXIA [None]
